FAERS Safety Report 6174605-4 (Version None)
Quarter: 2009Q2

REPORT INFORMATION
  Report Type: 
  Country: None (occurrence: None)
  Receive Date: 20090430
  Receipt Date: 20080814
  Transmission Date: 20091009
  Serious: No
  Sender: FDA-Public Use
  Company Number: US-ASTRAZENECA-2008UW16660

PATIENT
  Age: 43 Year
  Sex: Female
  Weight: 55.3 kg

DRUGS (3)
  1. NEXIUM [Suspect]
     Route: 048
  2. NEXIUM [Suspect]
     Route: 048
  3. GAS-X [Concomitant]

REACTIONS (2)
  - HEADACHE [None]
  - PERIPHERAL VASCULAR DISORDER [None]
